FAERS Safety Report 21890931 (Version 2)
Quarter: 2025Q3

REPORT INFORMATION
  Report Type: Report from Study
  Country: JP (occurrence: JP)
  Receive Date: 20230120
  Receipt Date: 20250905
  Transmission Date: 20251021
  Serious: Yes (Other)
  Sender: ALEXION PHARMACEUTICALS
  Company Number: 2023A010702

PATIENT
  Age: 40 Year
  Sex: Female
  Weight: 56 kg

DRUGS (2)
  1. ANIFROLUMAB [Suspect]
     Active Substance: ANIFROLUMAB
     Indication: Systemic lupus erythematosus
     Dates: start: 20220517, end: 20220712
  2. ANIFROLUMAB [Suspect]
     Active Substance: ANIFROLUMAB
     Dates: start: 20220913, end: 20221115

REACTIONS (2)
  - Diarrhoea [Recovered/Resolved]
  - Renal impairment [Recovered/Resolved]

NARRATIVE: CASE EVENT DATE: 20220704
